FAERS Safety Report 9234983 (Version 2)
Quarter: 2013Q2

REPORT INFORMATION
  Report Type: Report from Study
  Country: AU (occurrence: AU)
  Receive Date: 20130416
  Receipt Date: 20130628
  Transmission Date: 20140414
  Serious: Yes (Hospitalization)
  Sender: FDA-Public Use
  Company Number: AU-ELI_LILLY_AND_COMPANY-AU201301005382

PATIENT
  Age: 67 Year
  Sex: Female

DRUGS (3)
  1. TERIPARATIDE [Suspect]
     Indication: OSTEOPOROSIS
     Dosage: 20 UG, QD
     Dates: start: 20121124, end: 20130102
  2. TERIPARATIDE [Suspect]
     Dosage: UNK UNK, UNKNOWN
     Dates: start: 20130104, end: 20130104
  3. TERIPARATIDE [Suspect]
     Dosage: UNK UNK, UNKNOWN

REACTIONS (8)
  - Adrenocortical insufficiency acute [Recovered/Resolved]
  - Vomiting [Recovered/Resolved]
  - Nausea [Recovered/Resolved]
  - Weight decreased [Recovered/Resolved]
  - Gait disturbance [Recovered/Resolved]
  - Musculoskeletal pain [Recovered/Resolved]
  - Polymyalgia rheumatica [Recovered/Resolved]
  - Urinary tract infection [Recovered/Resolved]
